FAERS Safety Report 7941707-9 (Version None)
Quarter: 2011Q4

REPORT INFORMATION
  Report Type: 
  Country: None (occurrence: None)
  Receive Date: 20111128
  Receipt Date: 20111128
  Transmission Date: 20120403
  Serious: Yes (Life-Threatening, Other)
  Sender: FDA-Public Use
  Company Number: None

PATIENT
  Age: 69 Year
  Sex: Male
  Weight: 56.699 kg

DRUGS (1)
  1. VARENICLINE [Suspect]
     Indication: SMOKING CESSATION THERAPY
     Dosage: 0.5 MG
     Route: 048
     Dates: start: 20110115, end: 20110120

REACTIONS (4)
  - INTERNATIONAL NORMALISED RATIO INCREASED [None]
  - HEPATOCELLULAR INJURY [None]
  - BLOOD ALBUMIN DECREASED [None]
  - HEPATITIS C [None]
